FAERS Safety Report 5839332-9 (Version None)
Quarter: 2008Q3

REPORT INFORMATION
  Report Type: 
  Country: None (occurrence: None)
  Receive Date: 20080808
  Receipt Date: 20080627
  Transmission Date: 20090109
  Serious: Yes (Other)
  Sender: FDA-Public Use
  Company Number: DE-PFIZER INC-2008064954

PATIENT
  Age: 60 Year
  Sex: Female

DRUGS (2)
  1. HYDROXYZINE HYDROCHLORIDE [Suspect]
     Indication: SCHIZOPHRENIA
     Dosage: TEXT:32 DF
     Route: 048
  2. HYDROXYZINE HYDROCHLORIDE [Suspect]
     Dosage: TEXT:32F
     Route: 048

REACTIONS (3)
  - HYPERTENSION [None]
  - OVERDOSE [None]
  - PSYCHOTIC DISORDER [None]
